FAERS Safety Report 8874170 (Version 2)
Quarter: 2012Q4

REPORT INFORMATION
  Report Type: 
  Country: JP (occurrence: JP)
  Receive Date: 20121029
  Receipt Date: 20121126
  Transmission Date: 20130627
  Serious: Yes (Hospitalization)
  Sender: FDA-Public Use
  Company Number: JP-009507513-1210JPN010595

PATIENT
  Age: 73 Year
  Sex: Male
  Weight: 48 kg

DRUGS (13)
  1. REBETOL [Suspect]
     Indication: CHRONIC HEPATITIS C
     Dosage: 200 mg, qd
     Route: 048
     Dates: start: 20120813, end: 20120903
  2. PEGINTRON [Suspect]
     Indication: CHRONIC HEPATITIS C
     Dosage: 1.5 Microgram per kilogram, qw
     Route: 058
     Dates: start: 20120813, end: 20120827
  3. TELAVIC [Suspect]
     Indication: CHRONIC HEPATITIS C
     Dosage: 1500 mg, qd
     Route: 048
     Dates: start: 20120813, end: 20120903
  4. URSO [Concomitant]
     Indication: CHRONIC HEPATITIS C
     Dosage: 600 mg, qd
     Route: 048
  5. TAKEPRON [Concomitant]
     Indication: CHRONIC HEPATITIS C
     Dosage: 15 mg, qd
     Route: 048
  6. BAYASPIRIN [Concomitant]
     Indication: CAROTID ARTERY STENOSIS
     Dosage: 100 mg, qd
     Route: 048
  7. METGLUCO [Concomitant]
     Indication: TYPE 2 DIABETES MELLITUS
     Dosage: 250 mg, qd
     Route: 048
  8. METGLUCO [Concomitant]
     Dosage: 500 UNK, UNK
     Route: 048
  9. LOXONIN [Concomitant]
     Indication: PYREXIA
     Dosage: 60mg/day, prn
     Route: 048
     Dates: start: 20120813
  10. AMOBAN [Concomitant]
     Indication: INSOMNIA
     Dosage: 5mg/day, prn
     Route: 048
     Dates: start: 20120823
  11. LUNESTA [Concomitant]
     Indication: INSOMNIA
     Dosage: 1 mg/day, prn
     Route: 048
     Dates: start: 20120903
  12. GLUBEN [Concomitant]
     Indication: TYPE 2 DIABETES MELLITUS
     Route: 048
  13. GLUBEN [Concomitant]
     Dosage: 3 DF, qd
     Route: 048

REACTIONS (4)
  - Renal impairment [Recovering/Resolving]
  - Decreased appetite [Recovered/Resolved]
  - Pneumonia [Recovered/Resolved]
  - Anaemia [Recovered/Resolved]
